FAERS Safety Report 22241707 (Version 1)
Quarter: 2023Q2

REPORT INFORMATION
  Report Type: Spontaneous
  Country: CA (occurrence: CA)
  Receive Date: 20230421
  Receipt Date: 20230421
  Transmission Date: 20230722
  Serious: Yes (Hospitalization)
  Sender: FDA-Public Use
  Company Number: CA-002147023-NVSC2023CA089243

PATIENT

DRUGS (2)
  1. TACROLIMUS [Interacting]
     Active Substance: TACROLIMUS
     Indication: Solid organ transplant
     Dosage: UNK
     Route: 065
  2. TACROLIMUS [Interacting]
     Active Substance: TACROLIMUS
     Indication: Immunosuppressant drug therapy

REACTIONS (2)
  - Toxicity to various agents [Unknown]
  - Drug interaction [Unknown]
